FAERS Safety Report 25453783 (Version 2)
Quarter: 2025Q3

REPORT INFORMATION
  Report Type: Spontaneous
  Country: US (occurrence: US)
  Receive Date: 20250619
  Receipt Date: 20250731
  Transmission Date: 20251021
  Serious: No
  Sender: ELI LILLY AND COMPANY
  Company Number: US-ELI_LILLY_AND_COMPANY-US202506011861

PATIENT
  Age: 33 Year
  Sex: Male
  Weight: 129.25 kg

DRUGS (5)
  1. TALTZ [Suspect]
     Active Substance: IXEKIZUMAB
     Indication: Psoriasis
     Route: 030
     Dates: start: 20250519
  2. TALTZ [Suspect]
     Active Substance: IXEKIZUMAB
     Route: 030
     Dates: start: 20250522
  3. LIPITOL [Concomitant]
     Indication: Product used for unknown indication
     Dosage: 10 MG, DAILY
  4. AMMONIUM LACTATE [Concomitant]
     Active Substance: AMMONIUM LACTATE
     Indication: Product used for unknown indication
  5. ATARAX [Concomitant]
     Active Substance: HYDROXYZINE HYDROCHLORIDE
     Indication: Product used for unknown indication
     Dosage: 25 MG, BID

REACTIONS (2)
  - Illness [Recovering/Resolving]
  - Incorrect route of product administration [Unknown]
